FAERS Safety Report 9916758 (Version 1)
Quarter: 2014Q1

REPORT INFORMATION
  Report Type: Spontaneous
  Country: CA (occurrence: CA)
  Receive Date: 20140221
  Receipt Date: 20140221
  Transmission Date: 20141002
  Serious: Yes (Death, Other)
  Sender: FDA-Public Use
  Company Number: CA-PFIZER INC-2014050848

PATIENT
  Age: 47 Year
  Sex: Male
  Weight: 72.56 kg

DRUGS (2)
  1. MORPHINE SULFATE [Suspect]
     Dosage: 600 MG, SINGLE
     Route: 042
  2. MORPHINE SULFATE [Suspect]
     Dosage: UNK

REACTIONS (6)
  - Accidental overdose [Fatal]
  - Drug dependence [Fatal]
  - Drug abuse [Fatal]
  - Needle track marks [Unknown]
  - Fall [Unknown]
  - Tremor [Unknown]
